FAERS Safety Report 8924012 (Version 3)
Quarter: 2013Q1

REPORT INFORMATION
  Report Type: Spontaneous
  Country: FR (occurrence: FR)
  Receive Date: 20121126
  Receipt Date: 20130115
  Transmission Date: 20140127
  Serious: Yes (Life-Threatening, Hospitalization)
  Sender: FDA-Public Use
  Company Number: FR-ASTRAZENECA-2012SE88715

PATIENT
  Age: 21086 Day
  Sex: Female

DRUGS (10)
  1. CUBICIN [Suspect]
     Indication: ENDOCARDITIS
     Route: 042
     Dates: start: 20121020, end: 20121024
  2. CRESTOR [Suspect]
     Indication: HYPERCHOLESTEROLAEMIA
     Route: 048
     Dates: start: 20121017, end: 20121025
  3. TRIFLUCAN [Suspect]
     Indication: PROPHYLAXIS
     Route: 042
     Dates: start: 20121019, end: 20121025
  4. CORDARONE [Suspect]
     Indication: ARRHYTHMIA
     Route: 048
     Dates: start: 20121015, end: 20121025
  5. CARDENSIEL [Concomitant]
     Indication: TACHYCARDIA
     Route: 048
     Dates: start: 20121024, end: 20121025
  6. MOTILIUM [Concomitant]
     Dates: start: 20121021, end: 20121026
  7. CARDEGIC [Concomitant]
     Dates: start: 20120930
  8. ORGARAN [Concomitant]
     Dates: start: 20121019
  9. ATARAX [Concomitant]
     Dates: start: 20121023, end: 20121025
  10. FUROSEMIDE [Concomitant]

REACTIONS (1)
  - Hepatitis fulminant [Recovered/Resolved]
